FAERS Safety Report 17823711 (Version 1)
Quarter: 2020Q2

REPORT INFORMATION
  Report Type: Spontaneous
  Country: US (occurrence: US)
  Receive Date: 20200525
  Receipt Date: 20200525
  Transmission Date: 20200714
  Serious: Yes (Other)
  Sender: FDA-Public Use
  Company Number: None

PATIENT
  Age: 28 Year
  Sex: Female
  Weight: 69.75 kg

DRUGS (1)
  1. CVS HEALTH COLD SORE FEVER BLISTER TREATMENT [BENZALKONIUM CHLORIDE\CAMPHOR (SYNTHETIC)] [Suspect]
     Active Substance: BENZALKONIUM CHLORIDE\CAMPHOR (SYNTHETIC)
     Indication: ORAL HERPES
     Route: 061
     Dates: start: 20200523, end: 20200524

REACTIONS (3)
  - Chapped lips [None]
  - Lip swelling [None]
  - Oral discomfort [None]

NARRATIVE: CASE EVENT DATE: 20200524
